FAERS Safety Report 11421010 (Version 1)
Quarter: 2015Q3

REPORT INFORMATION
  Report Type: Report from Study
  Country: US (occurrence: US)
  Receive Date: 20150826
  Receipt Date: 20150826
  Transmission Date: 20151125
  Serious: Yes (Death, Hospitalization)
  Sender: FDA-Public Use
  Company Number: US-JNJFOC-20150808630

PATIENT
  Age: 79 Year
  Sex: Female

DRUGS (29)
  1. CLARITIN [Concomitant]
     Active Substance: LORATADINE
  2. PRILOSEC [Concomitant]
     Active Substance: OMEPRAZOLE MAGNESIUM
     Route: 048
  3. OXYGEN. [Concomitant]
     Active Substance: OXYGEN
  4. IMBRUVICA [Suspect]
     Active Substance: IBRUTINIB
     Indication: RICHTER^S SYNDROME
     Route: 048
     Dates: start: 201409, end: 20150729
  5. IMBRUVICA [Suspect]
     Active Substance: IBRUTINIB
     Indication: NON-HODGKIN^S LYMPHOMA
     Route: 048
  6. PROAIR HFA [Concomitant]
     Active Substance: ALBUTEROL SULFATE
  7. DIGOXIN. [Concomitant]
     Active Substance: DIGOXIN
     Route: 048
  8. SENOKOT-S [Concomitant]
     Active Substance: DOCUSATE SODIUM\SENNOSIDES
  9. ACETAMINOPHEN. [Concomitant]
     Active Substance: ACETAMINOPHEN
     Route: 048
  10. NUMOISYN [Concomitant]
  11. ADVAIR HFA [Concomitant]
     Active Substance: FLUTICASONE PROPIONATE\SALMETEROL XINAFOATE
     Route: 055
  12. ROBITUSSIN AC [Concomitant]
  13. NORCO [Concomitant]
     Active Substance: ACETAMINOPHEN\HYDROCODONE BITARTRATE
     Route: 048
  14. IMBRUVICA [Suspect]
     Active Substance: IBRUTINIB
     Indication: NON-HODGKIN^S LYMPHOMA
     Route: 048
     Dates: start: 201409, end: 20150729
  15. FLONASE [Concomitant]
     Active Substance: FLUTICASONE PROPIONATE
  16. XYLOCAINE [Concomitant]
     Active Substance: LIDOCAINE HYDROCHLORIDE
  17. THERAGRAN [Concomitant]
     Active Substance: VITAMINS
     Route: 048
  18. K-DUR [Concomitant]
     Active Substance: POTASSIUM CHLORIDE
     Route: 048
  19. IMBRUVICA [Suspect]
     Active Substance: IBRUTINIB
     Indication: RICHTER^S SYNDROME
     Route: 048
  20. DUONEB [Concomitant]
     Active Substance: ALBUTEROL SULFATE\IPRATROPIUM BROMIDE
  21. ZYLOPRIM [Concomitant]
     Active Substance: ALLOPURINOL
  22. MAG-OX [Concomitant]
     Active Substance: MAGNESIUM OXIDE
     Route: 048
  23. COUMADIN [Concomitant]
     Active Substance: WARFARIN SODIUM
     Dates: start: 20150729
  24. HYPROMELLOSE [Concomitant]
     Active Substance: HYPROMELLOSES
  25. ZOVIRAX [Concomitant]
     Active Substance: ACYCLOVIR
     Route: 048
  26. CARDIZEM CD [Concomitant]
     Active Substance: DILTIAZEM HYDROCHLORIDE
     Route: 048
  27. VIBRAMYCIN [Concomitant]
     Active Substance: DOXYCYCLINE
     Route: 048
  28. LASIX [Concomitant]
     Active Substance: FUROSEMIDE
     Route: 048
  29. ELOCON [Concomitant]
     Active Substance: MOMETASONE FUROATE

REACTIONS (8)
  - Blood lactate dehydrogenase increased [Unknown]
  - Pancytopenia [Unknown]
  - Incorrect dose administered [Recovered/Resolved]
  - Blood uric acid increased [Unknown]
  - Hypogammaglobulinaemia [Unknown]
  - Epistaxis [Unknown]
  - Disease progression [Fatal]
  - Off label use [Unknown]

NARRATIVE: CASE EVENT DATE: 20141119
